FAERS Safety Report 7368433-1 (Version None)
Quarter: 2011Q1

REPORT INFORMATION
  Report Type: 
  Country: None (occurrence: None)
  Receive Date: 20110317
  Receipt Date: 20110317
  Transmission Date: 20110831
  Serious: No
  Sender: FDA-Public Use
  Company Number: None

PATIENT
  Sex: Female
  Weight: 63.2768 kg

DRUGS (1)
  1. AVIANE-28 [Suspect]
     Indication: MIGRAINE
     Dosage: 1 TABLET DAILY ORAL
     Route: 048

REACTIONS (1)
  - MIGRAINE [None]
